FAERS Safety Report 5957178-8 (Version None)
Quarter: 2008Q4

REPORT INFORMATION
  Report Type: 
  Country: None (occurrence: None)
  Receive Date: 20081118
  Receipt Date: 20081105
  Transmission Date: 20090506
  Serious: Yes (Death, Other)
  Sender: FDA-Public Use
  Company Number: JP-ROCHE-589424

PATIENT
  Sex: Male
  Weight: 65 kg

DRUGS (14)
  1. PEGASYS [Suspect]
     Indication: HEPATITIS C
     Route: 058
     Dates: start: 20080805, end: 20080902
  2. PEGASYS [Suspect]
     Route: 058
     Dates: start: 20080909, end: 20080923
  3. COPEGUS [Suspect]
     Indication: HEPATITIS C
     Route: 048
     Dates: start: 20080805, end: 20080908
  4. COPEGUS [Suspect]
     Route: 048
     Dates: start: 20080909, end: 20080928
  5. RABEPRAZOLE SODIUM [Concomitant]
     Route: 048
     Dates: start: 20070402, end: 20080930
  6. GASMOTIN [Concomitant]
     Route: 048
     Dates: start: 20070402, end: 20080930
  7. URSO 250 [Concomitant]
     Route: 048
     Dates: start: 20070509, end: 20080930
  8. ALDACTONE [Concomitant]
     Route: 048
     Dates: start: 20070803, end: 20080930
  9. DEPAS [Concomitant]
     Route: 048
     Dates: start: 20080811, end: 20080930
  10. LOXONIN [Concomitant]
     Route: 048
     Dates: start: 20080806, end: 20080930
  11. ALLEGRA [Concomitant]
     Route: 048
     Dates: start: 20080902, end: 20080930
  12. SUCRALFATE [Concomitant]
     Dosage: DRUG REPORTED: ULCERLMIN FINE GRANULE FORM REPORTED: FINE GRANULE
     Route: 048
     Dates: start: 20080826, end: 20080930
  13. NERISONA [Concomitant]
     Dosage: FORM: LIQUID FOR EXTERNAL USE
     Route: 061
     Dates: start: 20080902, end: 20080930
  14. DEXALTIN [Concomitant]
     Route: 061
     Dates: start: 20080902, end: 20080930

REACTIONS (8)
  - ANXIETY [None]
  - CERVICOBRACHIAL SYNDROME [None]
  - DISSEMINATED INTRAVASCULAR COAGULATION [None]
  - PRURITUS [None]
  - PYREXIA [None]
  - SEPSIS [None]
  - SEPTIC EMBOLUS [None]
  - THROMBOCYTOPENIA [None]
